FAERS Safety Report 12320384 (Version 1)
Quarter: 2016Q2

REPORT INFORMATION
  Report Type: Spontaneous
  Country: US (occurrence: US)
  Receive Date: 20160429
  Receipt Date: 20160429
  Transmission Date: 20160815
  Serious: Yes (Hospitalization, Other)
  Sender: FDA-Public Use
  Company Number: US-MDT-ADR-2016-00266

PATIENT
  Age: 60 Year
  Sex: Female

DRUGS (1)
  1. LIORESAL [Suspect]
     Active Substance: BACLOFEN
     Dosage: 850MCG/DAY
     Route: 037

REACTIONS (3)
  - Somnolence [Unknown]
  - Overdose [Unknown]
  - Lethargy [Unknown]

NARRATIVE: CASE EVENT DATE: 20160206
